FAERS Safety Report 6874249-2 (Version None)
Quarter: 2010Q3

REPORT INFORMATION
  Report Type: 
  Country: None (occurrence: None)
  Receive Date: 20100723
  Receipt Date: 20090526
  Transmission Date: 20110219
  Serious: No
  Sender: FDA-Public Use
  Company Number: US-PFIZER INC-2009201123

PATIENT
  Sex: Female
  Weight: 63.946 kg

DRUGS (9)
  1. CHANTIX [Suspect]
     Indication: SMOKING CESSATION THERAPY
     Dosage: 0.5 MG, 1X/DAY
     Dates: start: 20090405
  2. SYNTHROID [Concomitant]
     Indication: THYROID DISORDER
     Dosage: UNK
  3. ZYRTEC-D 12 HOUR [Concomitant]
     Dosage: UNK
  4. PREVACID [Concomitant]
     Dosage: UNK
  5. KLONOPIN [Concomitant]
     Dosage: UNK
  6. LODINE [Concomitant]
     Dosage: UNK
  7. SKELAXIN [Concomitant]
     Dosage: UNK
  8. CYMBALTA [Concomitant]
     Dosage: UNK
  9. VICODIN [Concomitant]
     Dosage: UNK

REACTIONS (4)
  - CHILLS [None]
  - HEADACHE [None]
  - HYPERHIDROSIS [None]
  - PILOERECTION [None]
